FAERS Safety Report 23155437 (Version 3)
Quarter: 2025Q3

REPORT INFORMATION
  Report Type: Spontaneous
  Country: US (occurrence: US)
  Receive Date: 20231107
  Receipt Date: 20250823
  Transmission Date: 20251020
  Serious: Yes (Other)
  Sender: SANOFI AVENTIS
  Company Number: US-SA-SAC20231030001934

PATIENT
  Age: 76 Year
  Sex: Female

DRUGS (1)
  1. DUPIXENT [Suspect]
     Active Substance: DUPILUMAB
     Indication: Nasal polyps
     Dosage: 300 MG QOW
     Route: 058
     Dates: start: 20230801

REACTIONS (11)
  - Abdominal operation [Unknown]
  - Trigger finger [Unknown]
  - Hordeolum [Recovered/Resolved]
  - Dysphagia [Unknown]
  - Acne [Recovered/Resolved]
  - Productive cough [Unknown]
  - Upper-airway cough syndrome [Unknown]
  - Oral herpes [Recovered/Resolved]
  - Pain [Recovered/Resolved]
  - Arthralgia [Unknown]
  - Inappropriate schedule of product administration [Unknown]

NARRATIVE: CASE EVENT DATE: 20230101
